FAERS Safety Report 7426732-9 (Version None)
Quarter: 2011Q2

REPORT INFORMATION
  Report Type: 
  Country: None (occurrence: None)
  Receive Date: 20110420
  Receipt Date: 20110415
  Transmission Date: 20111010
  Serious: Yes (Death, Hospitalization)
  Sender: FDA-Public Use
  Company Number: US-ELI_LILLY_AND_COMPANY-US201103002164

PATIENT
  Age: 68 Year
  Sex: Female
  Weight: 66.667 kg

DRUGS (13)
  1. ALDACTONE [Concomitant]
  2. POTASSIUM CHLORIDE [Concomitant]
  3. LIPITOR [Concomitant]
  4. METOLAZONE [Concomitant]
  5. SYNTHROID [Concomitant]
  6. PHENYTOIN [Concomitant]
  7. EFFEXOR [Concomitant]
  8. ADCIRCA [Suspect]
     Indication: PULMONARY ARTERIAL HYPERTENSION
     Dosage: 40 MG, QD
     Route: 048
  9. REMODULIN [Concomitant]
     Indication: PULMONARY ARTERIAL HYPERTENSION
     Dosage: UNK, UNK
     Route: 042
     Dates: start: 20070205, end: 20110303
  10. TRACLEER [Concomitant]
  11. KLONOPIN [Concomitant]
  12. LASIX [Concomitant]
  13. PREVACID [Concomitant]

REACTIONS (2)
  - RESPIRATORY FAILURE [None]
  - DISEASE PROGRESSION [None]
